FAERS Safety Report 13075454 (Version 1)
Quarter: 2016Q4

REPORT INFORMATION
  Report Type: Spontaneous
  Country: US (occurrence: US)
  Receive Date: 20161229
  Receipt Date: 20161229
  Transmission Date: 20170207
  Serious: Yes (Other)
  Sender: FDA-Public Use
  Company Number: None

PATIENT
  Sex: Male

DRUGS (1)
  1. POTASSIUM CHLORIDE ER [Suspect]
     Active Substance: POTASSIUM CHLORIDE
     Route: 048
     Dates: start: 20151225, end: 20161223

REACTIONS (4)
  - Product size issue [None]
  - Choking [None]
  - Product coating issue [None]
  - Product quality issue [None]
